FAERS Safety Report 8756343 (Version 1)
Quarter: 2012Q4

REPORT INFORMATION
  Report Type: 
  Country: US (occurrence: US)
  Receive Date: 20120828
  Receipt Date: 20120828
  Transmission Date: 20130627
  Serious: Yes (Other)
  Sender: FDA-Public Use
  Company Number: US-009507513-2012SP025499

PATIENT

DRUGS (21)
  1. SUCCINYLCHOLINE CHLORIDE [Suspect]
     Indication: TUMOUR EXCISION
     Dosage: 120 mg, UNK
  2. ARIPIPRAZOLE [Concomitant]
     Indication: HOSPITALISATION
     Dosage: 30 mg, QD
  3. ZOLPIDEM TARTRATE [Concomitant]
     Indication: HOSPITALISATION
     Dosage: 5 mg, hs
  4. ZOLPIDEM TARTRATE [Concomitant]
     Dosage: HOSPITALZATION
  5. MIRTAZAPINE [Concomitant]
     Indication: HOSPITALISATION
     Dosage: 45 mg, hs
  6. QUETIAPINE FUMARATE [Concomitant]
     Indication: HOSPITALISATION
     Dosage: 550 mg, hs
  7. ATENOLOL [Concomitant]
     Indication: HOSPITALISATION
     Dosage: 25 mg, BID
  8. TAMSULOSIN HYDROCHLORIDE [Concomitant]
     Indication: HOSPITALISATION
     Dosage: 0.4 mg, hs
  9. DOCUSATE SODIUM [Concomitant]
     Indication: HOSPITALISATION
     Dosage: 100 mg, TID
  10. HALOPERIDOL [Concomitant]
     Indication: PARANOIA
     Dosage: 4 mg, UNK
     Route: 042
  11. LORAZEPAM [Concomitant]
     Indication: PARANOIA
  12. MIDAZENON [Concomitant]
     Indication: TUMOUR EXCISION
  13. CRIXOFOL [Concomitant]
     Indication: TUMOUR EXCISION
  14. CEFAZOLIN [Concomitant]
     Indication: TUMOUR EXCISION
  15. EPHEDRINE [Concomitant]
     Indication: TUMOUR EXCISION
  16. MORPHINE [Concomitant]
     Indication: TUMOUR EXCISION
  17. FENTANYL [Concomitant]
     Indication: TUMOUR EXCISION
  18. REMIFENTANIL HYDROCHLORIDE [Concomitant]
     Indication: TUMOUR EXCISION
  19. DEXAMETHASONE [Concomitant]
     Indication: TUMOUR EXCISION
  20. MK-9314 [Concomitant]
     Indication: TUMOUR EXCISION
  21. ONDANSETRON [Concomitant]
     Indication: TUMOUR EXCISION

REACTIONS (4)
  - Hyperthermia malignant [Unknown]
  - Muscle rigidity [None]
  - Full blood count increased [None]
  - General physical health deterioration [None]
